FAERS Safety Report 25176073 (Version 1)
Quarter: 2025Q2

REPORT INFORMATION
  Report Type: Report from Study
  Country: US (occurrence: US)
  Receive Date: 20250409
  Receipt Date: 20250409
  Transmission Date: 20250716
  Serious: Yes (Hospitalization)
  Sender: NOVARTIS
  Company Number: US-002147023-NVSC2025US056199

PATIENT
  Sex: Female

DRUGS (1)
  1. COSENTYX [Suspect]
     Active Substance: SECUKINUMAB
     Indication: Product used for unknown indication
     Dosage: 300 MG/KG, OTHER, (ADMINISTER 1 INJECTION UNDER THE SKIN EVERY 4 WEEKS)
     Route: 058
     Dates: start: 20241029

REACTIONS (2)
  - Lower limb fracture [Unknown]
  - Incorrect dose administered [Unknown]
